FAERS Safety Report 17932793 (Version 22)
Quarter: 2023Q2

REPORT INFORMATION
  Report Type: Spontaneous
  Country: CA (occurrence: CA)
  Receive Date: 20200624
  Receipt Date: 20230426
  Transmission Date: 20230721
  Serious: Yes (Hospitalization, Other)
  Sender: FDA-Public Use
  Company Number: CA-BRISTOL-MYERS SQUIBB COMPANY-BMS-2020-046445

PATIENT
  Sex: Male

DRUGS (72)
  1. ENBREL [Suspect]
     Active Substance: ETANERCEPT
     Indication: Psoriatic arthropathy
     Dosage: UNK
     Route: 065
  2. ENBREL [Suspect]
     Active Substance: ETANERCEPT
     Dosage: UNK
     Route: 065
  3. APIXABAN [Suspect]
     Active Substance: APIXABAN
     Indication: Product used for unknown indication
     Dosage: 5 MILLIGRAM, QD
     Route: 065
  4. APIXABAN [Suspect]
     Active Substance: APIXABAN
     Dosage: 1 DOSAGE FORM, QD
     Route: 065
  5. APIXABAN [Suspect]
     Active Substance: APIXABAN
     Dosage: 25 MILLIGRAM, QD
     Route: 065
  6. APIXABAN [Suspect]
     Active Substance: APIXABAN
     Dosage: 25.0 MILLIGRAM (1 EVERY 1 DAYS)
     Route: 065
  7. APIXABAN [Suspect]
     Active Substance: APIXABAN
     Dosage: 1.0 DOSAGE FORMS
     Route: 065
  8. AMIODARONE HYDROCHLORIDE [Suspect]
     Active Substance: AMIODARONE HYDROCHLORIDE
     Indication: Product used for unknown indication
     Dosage: 200 MILLIGRAM, QD
     Route: 065
  9. AMIODARONE HYDROCHLORIDE [Suspect]
     Active Substance: AMIODARONE HYDROCHLORIDE
     Dosage: 1 DOSAGE FORM, QD
     Route: 065
  10. AMIODARONE HYDROCHLORIDE [Suspect]
     Active Substance: AMIODARONE HYDROCHLORIDE
     Dosage: 200.0 MILLIGRAM (1 EVERY 1 DAYS)
     Route: 065
  11. AMIODARONE HYDROCHLORIDE [Suspect]
     Active Substance: AMIODARONE HYDROCHLORIDE
     Dosage: 1.0 DOSAGE FORMS, 1 EVERY 1 DAYS
     Route: 065
  12. METHOTREXATE SODIUM [Suspect]
     Active Substance: METHOTREXATE SODIUM
     Indication: Psoriatic arthropathy
     Dosage: 25 MILLIGRAM, QWK
     Route: 058
  13. METHOTREXATE SODIUM [Suspect]
     Active Substance: METHOTREXATE SODIUM
     Dosage: 1 DOSAGE FORM, QD
     Route: 058
  14. METHOTREXATE SODIUM [Suspect]
     Active Substance: METHOTREXATE SODIUM
     Dosage: 25.0 MILLIGRAM (1 EVERY 1 WEEKS)
     Route: 058
  15. METHOTREXATE SODIUM [Suspect]
     Active Substance: METHOTREXATE SODIUM
     Dosage: 1.0 DOSAGE FORMS
     Route: 058
  16. SPIRONOLACTONE [Suspect]
     Active Substance: SPIRONOLACTONE
     Indication: Product used for unknown indication
     Dosage: 25 MILLIGRAM, QD
     Route: 065
  17. SPIRONOLACTONE [Suspect]
     Active Substance: SPIRONOLACTONE
     Dosage: 25.0 MILLIGRAM (1 EVERY 1 DAYS)
     Route: 065
  18. HYDROCHLOROTHIAZIDE [Suspect]
     Active Substance: HYDROCHLOROTHIAZIDE
     Indication: Product used for unknown indication
     Dosage: 25 MILLIGRAM, QD
     Route: 065
  19. HYDROCHLOROTHIAZIDE [Suspect]
     Active Substance: HYDROCHLOROTHIAZIDE
     Dosage: 1 DOSAGE FORM, QD
     Route: 065
  20. HYDROCHLOROTHIAZIDE [Suspect]
     Active Substance: HYDROCHLOROTHIAZIDE
     Dosage: 25 MILLIGRAM, QD
     Route: 065
  21. SULFASALAZINE [Suspect]
     Active Substance: SULFASALAZINE
     Indication: Product used for unknown indication
     Dosage: 3 GRAM, QD
     Route: 065
  22. SULFASALAZINE [Suspect]
     Active Substance: SULFASALAZINE
     Dosage: 1 DOSAGE FORM, QD
     Route: 065
  23. SULFASALAZINE [Suspect]
     Active Substance: SULFASALAZINE
     Dosage: UNK
     Route: 065
  24. COSENTYX [Suspect]
     Active Substance: SECUKINUMAB
     Indication: Psoriatic arthropathy
     Dosage: UNK
     Route: 065
  25. COSENTYX [Suspect]
     Active Substance: SECUKINUMAB
     Dosage: UNK
     Route: 065
  26. COSENTYX [Suspect]
     Active Substance: SECUKINUMAB
     Dosage: UNK
     Route: 065
  27. TALTZ [Suspect]
     Active Substance: IXEKIZUMAB
     Indication: Psoriatic arthropathy
     Dosage: 80 MILLIGRAM
     Route: 065
  28. TALTZ [Suspect]
     Active Substance: IXEKIZUMAB
     Dosage: UNK UNK, QD
     Route: 065
  29. TALTZ [Suspect]
     Active Substance: IXEKIZUMAB
     Dosage: 1 DOSAGE FORM, QD
     Route: 065
  30. TALTZ [Suspect]
     Active Substance: IXEKIZUMAB
     Dosage: UNK
     Route: 065
  31. TALTZ [Suspect]
     Active Substance: IXEKIZUMAB
     Dosage: UNK
     Route: 065
  32. TALTZ [Suspect]
     Active Substance: IXEKIZUMAB
     Dosage: 1 DOSAGE FORM, QD
     Route: 065
  33. TALTZ [Suspect]
     Active Substance: IXEKIZUMAB
     Dosage: 1 DOSAGE FORM, QD
     Route: 065
  34. TALTZ [Suspect]
     Active Substance: IXEKIZUMAB
     Dosage: UNK
     Route: 065
  35. TALTZ [Suspect]
     Active Substance: IXEKIZUMAB
     Dosage: 80 MILLIGRAM, UNK
     Route: 065
  36. TALTZ [Suspect]
     Active Substance: IXEKIZUMAB
     Dosage: UNK
     Route: 065
  37. TALTZ [Suspect]
     Active Substance: IXEKIZUMAB
     Dosage: UNK
     Route: 065
  38. FOLIC ACID [Concomitant]
     Active Substance: FOLIC ACID
     Dosage: UNK, QD
  39. FOLIC ACID [Concomitant]
     Active Substance: FOLIC ACID
     Dosage: 1 DOSAGE FORM, QD
     Route: 065
  40. FOLIC ACID [Concomitant]
     Active Substance: FOLIC ACID
     Dosage: 1 DOSAGE FORM, QD
     Route: 065
  41. FOLIC ACID [Concomitant]
     Active Substance: FOLIC ACID
     Dosage: 1 DOSAGE FORM
     Route: 065
  42. FOLIC ACID [Concomitant]
     Active Substance: FOLIC ACID
     Dosage: 1 DOSAGE FORM, QD
     Route: 065
  43. FOLIC ACID [Concomitant]
     Active Substance: FOLIC ACID
     Dosage: 1 DOSAGE FORM, QD
     Route: 065
  44. METOPROLOL TARTRATE [Concomitant]
     Active Substance: METOPROLOL TARTRATE
     Dosage: 12.5 MILLIGRAM, QD
  45. METOPROLOL TARTRATE [Concomitant]
     Active Substance: METOPROLOL TARTRATE
     Dosage: 1 DOSAGE FORM, QD
     Route: 065
  46. METOPROLOL TARTRATE [Concomitant]
     Active Substance: METOPROLOL TARTRATE
     Dosage: UNK
     Route: 065
  47. METOPROLOL TARTRATE [Concomitant]
     Active Substance: METOPROLOL TARTRATE
     Dosage: 12.5 MILLIGRAM, 1 EVERY 1 DAYS
  48. HYDROXYCHLOROQUINE SULFATE [Concomitant]
     Active Substance: HYDROXYCHLOROQUINE SULFATE
     Indication: Psoriatic arthropathy
     Dosage: UNK
     Route: 065
  49. HYDROXYCHLOROQUINE SULFATE [Concomitant]
     Active Substance: HYDROXYCHLOROQUINE SULFATE
     Dosage: UNK
     Route: 065
  50. HYDROXYCHLOROQUINE SULFATE [Concomitant]
     Active Substance: HYDROXYCHLOROQUINE SULFATE
     Dosage: UNK
     Route: 065
  51. IXEKIZUMAB [Concomitant]
     Active Substance: IXEKIZUMAB
     Indication: Psoriatic arthropathy
     Dosage: 1 DOSAGE FORM, QD
     Route: 065
  52. IXEKIZUMAB [Concomitant]
     Active Substance: IXEKIZUMAB
     Dosage: 1 DOSAGE FORM
     Route: 065
  53. IXEKIZUMAB [Concomitant]
     Active Substance: IXEKIZUMAB
     Dosage: UNK
  54. IXEKIZUMAB [Concomitant]
     Active Substance: IXEKIZUMAB
     Dosage: 1 DF, 1X/DAY
     Route: 065
  55. METHOTREXATE [Concomitant]
     Active Substance: METHOTREXATE
     Indication: Psoriatic arthropathy
     Dosage: 1 DOSAGE FORM, QD
     Route: 058
  56. METHOTREXATE [Concomitant]
     Active Substance: METHOTREXATE
     Dosage: 25 MILLIGRAM, QWK
     Route: 058
  57. METHOTREXATE [Concomitant]
     Active Substance: METHOTREXATE
     Dosage: 25 MILLIGRAM, QD
     Route: 058
  58. HYDROXYCHLOROQUINE DIPHOSPHATE [Concomitant]
     Active Substance: HYDROXYCHLOROQUINE DIPHOSPHATE
     Indication: Psoriatic arthropathy
     Dosage: UNK
     Route: 065
  59. OMEPRAZOLE [Concomitant]
     Active Substance: OMEPRAZOLE
     Dosage: 20 MILLIGRAM, QD
  60. OMEPRAZOLE [Concomitant]
     Active Substance: OMEPRAZOLE
     Dosage: 1 DOSAGE FORM, QD
     Route: 065
  61. OMEPRAZOLE [Concomitant]
     Active Substance: OMEPRAZOLE
     Dosage: UNK
     Route: 065
  62. PREDNISONE [Concomitant]
     Active Substance: PREDNISONE
     Indication: Psoriatic arthropathy
     Dosage: 20 MILLIGRAM, QD
     Route: 058
  63. PREDNISONE [Concomitant]
     Active Substance: PREDNISONE
     Dosage: 1 DOSAGE FORM, QD
     Route: 058
  64. PREDNISONE [Concomitant]
     Active Substance: PREDNISONE
     Dosage: UNK
  65. PREDNISONE [Concomitant]
     Active Substance: PREDNISONE
     Dosage: 20.0 MILLIGRAM,1 EVERY 1 DAYS
     Route: 058
  66. RAMIPRIL [Concomitant]
     Active Substance: RAMIPRIL
     Indication: Psoriatic arthropathy
     Dosage: 10 MILLIGRAM, QD
     Route: 065
  67. RAMIPRIL [Concomitant]
     Active Substance: RAMIPRIL
     Dosage: 1 DOSAGE FORM, QD
     Route: 065
  68. RAMIPRIL [Concomitant]
     Active Substance: RAMIPRIL
     Dosage: UNK
  69. RAMIPRIL [Concomitant]
     Active Substance: RAMIPRIL
     Dosage: 10.0 MILLIGRAM, 1 EVERY 1 DAYS
     Route: 065
  70. LASIX [Concomitant]
     Active Substance: FUROSEMIDE
     Dosage: 20 MILLIGRAM, BID
     Route: 065
  71. LASIX [Concomitant]
     Active Substance: FUROSEMIDE
     Dosage: 20 MILLIGRAM,  EVERY .5 DAYS
     Route: 065
  72. LASIX [Concomitant]
     Active Substance: FUROSEMIDE
     Dosage: 2 DOSAGE FORM, QD
     Route: 065

REACTIONS (3)
  - Cardiac failure congestive [Unknown]
  - Ejection fraction decreased [Unknown]
  - Off label use [Unknown]
